FAERS Safety Report 15865087 (Version 2)
Quarter: 2019Q1

REPORT INFORMATION
  Report Type: Spontaneous
  Country: US (occurrence: US)
  Receive Date: 20190124
  Receipt Date: 20190215
  Transmission Date: 20190417
  Serious: No
  Sender: FDA-Public Use
  Company Number: PHHY2019US016370

PATIENT
  Sex: Female

DRUGS (1)
  1. SYSTANE GELDROPS [Suspect]
     Active Substance: POLYETHYLENE GLYCOL 400\PROPYLENE GLYCOL
     Indication: PRODUCT USED FOR UNKNOWN INDICATION
     Route: 047

REACTIONS (7)
  - Eye swelling [Recovering/Resolving]
  - Product container issue [Unknown]
  - Eye disorder [Recovering/Resolving]
  - Product administration error [Unknown]
  - Ocular hyperaemia [Recovering/Resolving]
  - Nervousness [Recovering/Resolving]
  - Eye irritation [Recovering/Resolving]
